FAERS Safety Report 7270977-8 (Version None)
Quarter: 2011Q1

REPORT INFORMATION
  Report Type: 
  Country: None (occurrence: None)
  Receive Date: 20110202
  Receipt Date: 20101223
  Transmission Date: 20110831
  Serious: Yes (Hospitalization)
  Sender: FDA-Public Use
  Company Number: US-BAYER-201022353NA

PATIENT
  Sex: Female
  Weight: 66 kg

DRUGS (6)
  1. IBUPROFEN [Concomitant]
     Dates: start: 20040101
  2. NEXIUM [Concomitant]
  3. CYCLOBENZAPRINE [Concomitant]
     Route: 048
     Dates: start: 20060331
  4. YASMIN [Suspect]
     Indication: CONTRACEPTION
     Route: 048
     Dates: start: 20040401, end: 20090415
  5. TOPROL-XL [Concomitant]
     Indication: HYPERTENSION
     Dosage: 50 MG, UNK
     Route: 048
  6. YASMIN [Suspect]
     Indication: DYSMENORRHOEA
     Route: 048
     Dates: start: 20040401, end: 20090401

REACTIONS (4)
  - ABDOMINAL PAIN UPPER [None]
  - CHOLELITHIASIS [None]
  - HEADACHE [None]
  - ACNE [None]
